FAERS Safety Report 6009549 (Version 2)
Quarter: 2013Q4

REPORT INFORMATION
  Report Type: Spontaneous
  Country: US (occurrence: US)
  Receive Date: 20060322
  Receipt Date: 20131108
  Transmission Date: 20140711
  Serious: Yes (Hospitalization)
  Sender: FDA-Public Use
  Company Number: US-BRISTOL-MYERS SQUIBB COMPANY-13316856

PATIENT
  Age: 50 Year
  Sex: Female
  Weight: 94.78 kg

DRUGS (4)
  1. GLUCOPHAGE XR TABS [Suspect]
     Dates: start: 200511, end: 200601
  2. BYETTA PEN DISPOSABLE [Suspect]
     Indication: TYPE 2 DIABETES MELLITUS
     Route: 058
     Dates: start: 200508, end: 200512
  3. BYETTA PEN DISPOSABLE [Suspect]
     Indication: TYPE 2 DIABETES MELLITUS
     Route: 058
     Dates: start: 200508, end: 20060201
  4. METFORMIN [Concomitant]
     Dates: start: 200508

REACTIONS (6)
  - Cholelithiasis [Unknown]
  - Hepatic enzyme increased [Unknown]
  - Blood bilirubin increased [Unknown]
  - Blood glucose increased [Unknown]
  - Diarrhoea [Unknown]
  - Abdominal pain upper [Unknown]
